FAERS Safety Report 4876220-9 (Version None)
Quarter: 2005Q4

REPORT INFORMATION
  Report Type: 
  Country: None (occurrence: None)
  Receive Date: 20051205
  Receipt Date: 20050811
  Transmission Date: 20060501
  Serious: No
  Sender: FDA-Public Use
  Company Number: USA0506100280

PATIENT
  Sex: Male

DRUGS (1)
  1. ALIMTA [Suspect]
     Dates: start: 20050607, end: 20050607

REACTIONS (4)
  - ACCIDENTAL EXPOSURE [None]
  - CHEST DISCOMFORT [None]
  - DYSGEUSIA [None]
  - PARAESTHESIA [None]
